FAERS Safety Report 6506118-1 (Version None)
Quarter: 2009Q4

REPORT INFORMATION
  Report Type: 
  Country: None (occurrence: None)
  Receive Date: 20091217
  Receipt Date: 20091217
  Transmission Date: 20100525
  Serious: No
  Sender: FDA-Public Use
  Company Number: None

PATIENT
  Age: 68 Year
  Sex: Male
  Weight: 95.2554 kg

DRUGS (6)
  1. COLD REMEDY NASAL GEL [Suspect]
     Dosage: 2 DOSES
     Dates: start: 20091118, end: 20091121
  2. ATENOLOL [Concomitant]
  3. OMEPRAZOLE [Concomitant]
  4. LOVASTATIN [Concomitant]
  5. ASPIRIN [Concomitant]
  6. GLUCOSAMINE WITH CHONDROITIN [Concomitant]

REACTIONS (2)
  - AGEUSIA [None]
  - ANOSMIA [None]
